FAERS Safety Report 8838629 (Version 1)
Quarter: 2012Q4

REPORT INFORMATION
  Report Type: 
  Country: US (occurrence: US)
  Receive Date: 20121012
  Receipt Date: 20121012
  Transmission Date: 20130627
  Serious: Yes (Hospitalization)
  Sender: FDA-Public Use
  Company Number: US-TEVA-363810USA

PATIENT
  Age: 24 Year
  Sex: Male

DRUGS (4)
  1. HALOPERIDOL [Suspect]
     Indication: SCHIZOPHRENIA
     Route: 065
  2. ILOPERIDONE [Suspect]
     Indication: SCHIZOPHRENIA
     Dosage: then increased to 2mg twice daily
     Route: 065
  3. ILOPERIDONE [Suspect]
     Indication: SCHIZOPHRENIA
     Dosage: then increased to 4mg
     Route: 065
  4. ILOPERIDONE [Suspect]
     Indication: SCHIZOPHRENIA
     Dosage: 4mg
     Route: 065

REACTIONS (2)
  - Angioedema [Recovering/Resolving]
  - Drug hypersensitivity [Unknown]
